FAERS Safety Report 8571790-1 (Version None)
Quarter: 2012Q3

REPORT INFORMATION
  Report Type: 
  Country: None (occurrence: None)
  Receive Date: 20120806
  Receipt Date: 20120727
  Transmission Date: 20120928
  Serious: Yes (Other)
  Sender: FDA-Public Use
  Company Number: FR-009507513-1207FRA012411

PATIENT

DRUGS (1)
  1. NOMEGESTROL ACETATE/ESTRADIOL [Suspect]
     Indication: CONTRACEPTION
     Dosage: UNK
     Dates: start: 20120501, end: 20120601

REACTIONS (3)
  - DEPRESSION [None]
  - ACNE [None]
  - WEIGHT INCREASED [None]
